FAERS Safety Report 8873461 (Version 2)
Quarter: 2012Q4

REPORT INFORMATION
  Report Type: 
  Country: LB (occurrence: LB)
  Receive Date: 20121030
  Receipt Date: 20121231
  Transmission Date: 20130627
  Serious: Yes (Death)
  Sender: FDA-Public Use
  Company Number: LB-CELGENEUS-093-20785-12042802

PATIENT
  Age: 82 Year
  Sex: Male

DRUGS (5)
  1. THALIDOMIDE [Suspect]
     Indication: MULTIPLE MYELOMA
     Dosage: 50 Milligram
     Route: 048
     Dates: start: 201109
  2. EURO-FER [Concomitant]
     Indication: ANEMIA
     Route: 065
  3. AERIUS [Concomitant]
     Indication: PRURITIS
     Route: 065
  4. ATARAX [Concomitant]
     Indication: PRURITIS
     Route: 065
  5. XYZAL [Concomitant]
     Indication: PRURITIS
     Route: 065

REACTIONS (1)
  - Myocardial infarction [Fatal]
